FAERS Safety Report 15885719 (Version 2)
Quarter: 2019Q1

REPORT INFORMATION
  Report Type: Spontaneous
  Country: JP (occurrence: JP)
  Receive Date: 20190129
  Receipt Date: 20190213
  Transmission Date: 20190417
  Serious: Yes (Death, Other)
  Sender: FDA-Public Use
  Company Number: JP-009507513-1808JPN001416J

PATIENT
  Age: 70 Year
  Sex: Male
  Weight: 57 kg

DRUGS (10)
  1. TAMIFLU [Concomitant]
     Active Substance: OSELTAMIVIR PHOSPHATE
     Indication: PROPHYLAXIS
     Dosage: 1 DOSAGE FORM, QD
     Route: 048
     Dates: start: 20180111, end: 20180115
  2. LOXOPROFEN [Concomitant]
     Active Substance: LOXOPROFEN
     Indication: ARTHRALGIA
     Dosage: 1 DOSAGE FORM, BID
     Route: 048
     Dates: start: 20180105, end: 20180118
  3. REBAMIPIDE [Concomitant]
     Active Substance: REBAMIPIDE
     Indication: PYREXIA
     Dosage: 1 DOSAGE FORM, PRN
     Route: 048
     Dates: start: 20171215
  4. REBAMIPIDE [Concomitant]
     Active Substance: REBAMIPIDE
     Indication: ARTHRALGIA
     Dosage: 1 DOSAGE FORM, BID
     Route: 048
     Dates: start: 20180105, end: 20180118
  5. ULTIBRO [Concomitant]
     Active Substance: GLYCOPYRRONIUM\INDACATEROL
     Indication: CHRONIC OBSTRUCTIVE PULMONARY DISEASE
     Dosage: 1 DOSAGE FORM, QD
     Dates: start: 20161114, end: 20181120
  6. LOXOPROFEN [Concomitant]
     Active Substance: LOXOPROFEN
     Indication: PYREXIA
     Dosage: 1 DOSAGE FORM, PRN
     Route: 048
     Dates: start: 20171215
  7. KEYTRUDA [Suspect]
     Active Substance: PEMBROLIZUMAB
     Indication: NON-SMALL CELL LUNG CANCER
     Dosage: 200 MILLIGRAM, Q3W
     Route: 041
     Dates: start: 20171215, end: 20171215
  8. LOXOPROFEN [Concomitant]
     Active Substance: LOXOPROFEN
     Indication: HEADACHE
  9. REBAMIPIDE [Concomitant]
     Active Substance: REBAMIPIDE
     Indication: HEADACHE
  10. FLOMOX [CEFCAPENE PIVOXIL HYDROCHLORIDE] [Concomitant]
     Active Substance: CEFCAPENE PIVOXIL HYDROCHLORIDE
     Indication: PNEUMONIA
     Dosage: 1 DOSAGE FORM, TID
     Route: 048
     Dates: start: 20180105, end: 20180115

REACTIONS (6)
  - Aspergillus infection [Unknown]
  - Death [Fatal]
  - Malignant neoplasm progression [Unknown]
  - Rheumatoid arthritis [Not Recovered/Not Resolved]
  - Interstitial lung disease [Recovering/Resolving]
  - Erythema nodosum [Recovering/Resolving]

NARRATIVE: CASE EVENT DATE: 20180118
